FAERS Safety Report 24314303 (Version 2)
Quarter: 2024Q4

REPORT INFORMATION
  Report Type: Spontaneous
  Country: AU (occurrence: AU)
  Receive Date: 20240912
  Receipt Date: 20241015
  Transmission Date: 20250114
  Serious: Yes (Death, Hospitalization)
  Sender: EISAI
  Company Number: AU-Eisai-EC-2024-173975

PATIENT
  Age: 66 Year
  Sex: Female
  Weight: 77 kg

DRUGS (3)
  1. LENVATINIB [Suspect]
     Active Substance: LENVATINIB
     Indication: Endometrial cancer
     Dosage: FREQUENCY UNKNOWN
     Route: 048
     Dates: start: 20231023
  2. LENVATINIB [Suspect]
     Active Substance: LENVATINIB
     Dosage: FREQUENCY UNKNOWN
     Route: 048
     Dates: end: 20240331
  3. PEMBROLIZUMAB [Concomitant]
     Active Substance: PEMBROLIZUMAB
     Indication: Endometrial cancer
     Dosage: UNKNOWN DOSE
     Route: 048

REACTIONS (1)
  - Necrotising fasciitis [Fatal]

NARRATIVE: CASE EVENT DATE: 20240331
